FAERS Safety Report 17971985 (Version 2)
Quarter: 2020Q3

REPORT INFORMATION
  Report Type: Report from Study
  Country: US (occurrence: US)
  Receive Date: 20200702
  Receipt Date: 20200806
  Transmission Date: 20201103
  Serious: Yes (Other)
  Sender: FDA-Public Use
  Company Number: US-BIOGEN-2020BI00891112

PATIENT
  Sex: Female

DRUGS (4)
  1. AVONEX PEN [Suspect]
     Active Substance: INTERFERON BETA-1A
     Indication: MULTIPLE SCLEROSIS
     Route: 030
  2. AVONEX PEN [Suspect]
     Active Substance: INTERFERON BETA-1A
  3. AVONEX PEN [Suspect]
     Active Substance: INTERFERON BETA-1A
  4. AVONEX PEN [Suspect]
     Active Substance: INTERFERON BETA-1A

REACTIONS (7)
  - Optic neuritis [Not Recovered/Not Resolved]
  - Intentional product misuse [Recovered/Resolved]
  - Dyschromatopsia [Not Recovered/Not Resolved]
  - Blindness transient [Recovered/Resolved]
  - Visual impairment [Not Recovered/Not Resolved]
  - Amnesia [Not Recovered/Not Resolved]
  - Cerebral disorder [Not Recovered/Not Resolved]
